FAERS Safety Report 11124584 (Version 1)
Quarter: 2015Q2

REPORT INFORMATION
  Report Type: Spontaneous
  Country: BR (occurrence: BR)
  Receive Date: 20150520
  Receipt Date: 20150520
  Transmission Date: 20150821
  Serious: Yes (Hospitalization, Other)
  Sender: FDA-Public Use
  Company Number: BR-ROCHE-1579420

PATIENT
  Age: 55 Year
  Sex: Female

DRUGS (12)
  1. MYCOPHENOLATE MOFETIL. [Concomitant]
     Active Substance: MYCOPHENOLATE MOFETIL
     Indication: PROPHYLAXIS AGAINST GRAFT VERSUS HOST DISEASE
     Route: 065
  2. VINCRISTINE [Suspect]
     Active Substance: VINCRISTINE
     Indication: RICHTER^S SYNDROME
     Route: 065
     Dates: start: 20090924, end: 20091126
  3. MELPHALAN [Concomitant]
     Active Substance: MELPHALAN
     Indication: BONE MARROW TRANSPLANT
     Route: 065
     Dates: start: 2009
  4. CYCLOPHOSPHAMIDE. [Suspect]
     Active Substance: CYCLOPHOSPHAMIDE
     Indication: B-CELL SMALL LYMPHOCYTIC LYMPHOMA
     Route: 065
     Dates: start: 20080803, end: 20081119
  5. DOXORUBICIN [Suspect]
     Active Substance: DOXORUBICIN
     Indication: RICHTER^S SYNDROME
     Route: 065
     Dates: start: 20090924, end: 20091126
  6. RITUXIMAB [Suspect]
     Active Substance: RITUXIMAB
     Indication: B-CELL SMALL LYMPHOCYTIC LYMPHOMA
     Route: 065
     Dates: start: 20080803, end: 20081119
  7. FLUDARABINE [Suspect]
     Active Substance: FLUDARABINE PHOSPHATE
     Indication: BONE MARROW TRANSPLANT
     Route: 065
     Dates: start: 2009
  8. CYCLOPHOSPHAMIDE. [Suspect]
     Active Substance: CYCLOPHOSPHAMIDE
     Indication: RICHTER^S SYNDROME
     Route: 065
     Dates: start: 20090924, end: 20091126
  9. PREDNISONE. [Suspect]
     Active Substance: PREDNISONE
     Indication: RICHTER^S SYNDROME
     Route: 065
     Dates: start: 20090924, end: 20091126
  10. RITUXIMAB [Suspect]
     Active Substance: RITUXIMAB
     Indication: RICHTER^S SYNDROME
     Route: 065
     Dates: start: 20090924, end: 20091126
  11. FLUDARABINE [Suspect]
     Active Substance: FLUDARABINE PHOSPHATE
     Indication: B-CELL SMALL LYMPHOCYTIC LYMPHOMA
     Route: 065
     Dates: start: 20080803, end: 20081119
  12. CYCLOSPORINE. [Concomitant]
     Active Substance: CYCLOSPORINE
     Indication: PROPHYLAXIS AGAINST GRAFT VERSUS HOST DISEASE

REACTIONS (6)
  - Graft versus host disease [Unknown]
  - Invasive lobular breast carcinoma [Unknown]
  - Diffuse large B-cell lymphoma [Unknown]
  - Mucosal inflammation [Unknown]
  - Graft versus host disease in skin [Recovered/Resolved]
  - Richter^s syndrome [Unknown]

NARRATIVE: CASE EVENT DATE: 200909
